FAERS Safety Report 10456489 (Version 1)
Quarter: 2014Q3

REPORT INFORMATION
  Report Type: Spontaneous
  Country: DE (occurrence: None)
  Receive Date: 20140912
  Receipt Date: 20140912
  Transmission Date: 20150326
  Serious: Yes (Life-Threatening, Hospitalization)
  Sender: FDA-Public Use
  Company Number: FK201403636

PATIENT
  Age: 54 Year
  Sex: Female
  Weight: 86 kg

DRUGS (5)
  1. FORTECORTIN [Concomitant]
     Active Substance: DEXAMETHASONE
  2. CIMETIDINE [Concomitant]
     Active Substance: CIMETIDINE
  3. FENISTIL (DIMETINDENE MALEATE) [Concomitant]
  4. PACLITAXEL. [Suspect]
     Active Substance: PACLITAXEL
     Indication: CHEMOTHERAPY
  5. ONDANSETRON [Concomitant]
     Active Substance: ONDANSETRON

REACTIONS (4)
  - Circulatory collapse [None]
  - Loss of consciousness [None]
  - Hypersensitivity [None]
  - Respiratory arrest [None]

NARRATIVE: CASE EVENT DATE: 20140731
